FAERS Safety Report 7211472-1 (Version None)
Quarter: 2011Q1

REPORT INFORMATION
  Report Type: 
  Country: None (occurrence: None)
  Receive Date: 20110105
  Receipt Date: 20101226
  Transmission Date: 20110831
  Serious: Yes (Hospitalization)
  Sender: FDA-Public Use
  Company Number: PHHY2010PL83118

PATIENT
  Sex: Female
  Weight: 45 kg

DRUGS (5)
  1. MYCOPHENOLIC ACID [Suspect]
     Indication: RENAL TRANSPLANT
     Dosage: 1440 MG, DAILY
     Route: 048
     Dates: start: 20100721, end: 20101219
  2. NEORAL [Suspect]
     Indication: RENAL TRANSPLANT
     Dosage: 100 MG, UNK
     Dates: start: 19930429, end: 20101202
  3. DILTIAZEM [Concomitant]
     Indication: PULMONARY ARTERIAL HYPERTENSION
     Dosage: 180 MG, UNK
     Dates: start: 19930429
  4. ENCORTON [Concomitant]
     Indication: RENAL TRANSPLANT
     Dosage: 10 MG, UNK
     Dates: start: 19930429
  5. AZATHIOPRINE [Concomitant]
     Dosage: UNK
     Dates: start: 20100721

REACTIONS (8)
  - BLOOD UREA INCREASED [None]
  - PROTEIN URINE PRESENT [None]
  - BLOOD CREATINE INCREASED [None]
  - RENAL FAILURE [None]
  - ANAEMIA [None]
  - NEPHROPATHY TOXIC [None]
  - RENAL IMPAIRMENT [None]
  - ARTERIOVENOUS FISTULA OPERATION [None]
